FAERS Safety Report 4674530-1 (Version None)
Quarter: 2005Q2

REPORT INFORMATION
  Report Type: 
  Country: None (occurrence: None)
  Receive Date: 20050526
  Receipt Date: 20050516
  Transmission Date: 20051028
  Serious: Yes (Death, Hospitalization)
  Sender: FDA-Public Use
  Company Number: FR-MERCK-0505FRA00059

PATIENT

DRUGS (6)
  1. SINGULAIR [Suspect]
     Indication: ASTHMA
  2. ACETYLCYSTEINE [Suspect]
  3. FENSPIRIDE HYDROCHLORIDE [Suspect]
  4. CETIRIZINE HYDROCHLORIDE [Suspect]
  5. CEFPODOXIME PROXETIL [Suspect]
  6. PREDNISONE [Suspect]

REACTIONS (4)
  - ABORTION INDUCED [None]
  - DRUG EXPOSURE DURING PREGNANCY [None]
  - PREGNANCY [None]
  - SPINA BIFIDA [None]
